FAERS Safety Report 5587937-5 (Version None)
Quarter: 2008Q1

REPORT INFORMATION
  Report Type: 
  Country: None (occurrence: None)
  Receive Date: 20080111
  Receipt Date: 20080104
  Transmission Date: 20080703
  Serious: Yes (Hospitalization)
  Sender: FDA-Public Use
  Company Number: CL-JNJFOC-20070402656

PATIENT
  Sex: Male
  Weight: 66.4 kg

DRUGS (13)
  1. TMC114 [Suspect]
     Route: 048
  2. TMC114 [Suspect]
     Indication: HIV INFECTION
     Dosage: PERMANENT STOP
     Route: 048
  3. NORVIR [Suspect]
     Route: 048
  4. NORVIR [Suspect]
     Indication: HIV INFECTION
     Route: 048
  5. COMBIVIR [Concomitant]
     Route: 048
  6. COMBIVIR [Concomitant]
     Indication: HIV INFECTION
     Route: 048
  7. GEMFIBROZIL [Concomitant]
     Route: 065
  8. GEMFIBROZIL [Concomitant]
     Indication: HYPERTRIGLYCERIDAEMIA
     Route: 065
  9. CHLORPHENIRAMINE MALEATE [Concomitant]
     Indication: HYPERSENSITIVITY
     Route: 048
  10. ACETAMINOPHEN [Concomitant]
     Indication: HEADACHE
     Route: 048
  11. CHLORDIAZEPOXIDE WITH CLIDINIUM BROMIDE [Concomitant]
     Indication: INTESTINAL FUNCTIONAL DISORDER
     Route: 048
  12. PHILLIPS ANTACID [Concomitant]
     Indication: ABDOMINAL PAIN UPPER
     Route: 048
  13. SALINE SOLUTION [Concomitant]
     Route: 042

REACTIONS (33)
  - ABDOMINAL PAIN [None]
  - ABDOMINAL PAIN UPPER [None]
  - ANAEMIA [None]
  - BILIARY DILATATION [None]
  - BLOOD CHOLESTEROL INCREASED [None]
  - BLOOD CREATININE INCREASED [None]
  - BLOOD GLUCOSE INCREASED [None]
  - CENTRAL LINE INFECTION [None]
  - CHEST PAIN [None]
  - CLOSTRIDIUM DIFFICILE COLITIS [None]
  - DELIRIUM [None]
  - DEPRESSION [None]
  - DISORIENTATION [None]
  - ENDOSCOPY ABNORMAL [None]
  - FUNGAL INFECTION [None]
  - GRANULOMATOUS LIVER DISEASE [None]
  - HEADACHE [None]
  - HYPERLIPIDAEMIA [None]
  - HYPERSENSITIVITY [None]
  - HYPERTRIGLYCERIDAEMIA [None]
  - INFLAMMATION [None]
  - INFLUENZA [None]
  - LIVER DISORDER [None]
  - METABOLIC ENCEPHALOPATHY [None]
  - PANCREATIC NECROSIS [None]
  - PANCREATITIS HAEMORRHAGIC [None]
  - RASH [None]
  - RENAL IMPAIRMENT [None]
  - RETROPERITONEAL OEDEMA [None]
  - SOMNOLENCE [None]
  - STAPHYLOCOCCAL BACTERAEMIA [None]
  - TOXIC ENCEPHALOPATHY [None]
  - VEIN DISORDER [None]
